FAERS Safety Report 25314913 (Version 3)
Quarter: 2025Q2

REPORT INFORMATION
  Report Type: Spontaneous
  Country: US (occurrence: US)
  Receive Date: 20250514
  Receipt Date: 20250528
  Transmission Date: 20250716
  Serious: Yes (Other)
  Sender: SANOFI AVENTIS
  Company Number: US-SA-2025SA131581

PATIENT
  Sex: Female

DRUGS (2)
  1. TZIELD [Suspect]
     Active Substance: TEPLIZUMAB-MZWV
     Indication: Diabetes prophylaxis
     Dosage: 65 UG/M2, QD
     Route: 041
     Dates: start: 20250505, end: 20250507
  2. TZIELD [Suspect]
     Active Substance: TEPLIZUMAB-MZWV
     Dosage: 65 UG/M2, QD
     Route: 041
     Dates: start: 202505

REACTIONS (5)
  - Thrombocytopenia [Recovering/Resolving]
  - Neutrophil count abnormal [Recovered/Resolved]
  - Lymphopenia [Unknown]
  - Vomiting [Recovered/Resolved]
  - Nausea [Recovered/Resolved]

NARRATIVE: CASE EVENT DATE: 20250501
